FAERS Safety Report 5963409-0 (Version None)
Quarter: 2008Q4

REPORT INFORMATION
  Report Type: 
  Country: None (occurrence: None)
  Receive Date: 20081121
  Receipt Date: 20081121
  Transmission Date: 20090506
  Serious: Yes (Life-Threatening, Hospitalization)
  Sender: FDA-Public Use
  Company Number: None

PATIENT
  Age: 82 Year
  Sex: Female
  Weight: 91.4 kg

DRUGS (3)
  1. SORAFENIB (BAYER) 200MG [Suspect]
     Indication: RENAL CELL CARCINOMA
     Dosage: 400MG BID ORAL
     Route: 048
     Dates: start: 20080625, end: 20080703
  2. LEVOTHYROXINE SODIUM [Concomitant]
  3. IBUPROFEN TABLETS [Concomitant]

REACTIONS (7)
  - DERMATITIS EXFOLIATIVE [None]
  - DIALYSIS [None]
  - HYPOPHAGIA [None]
  - LEUKOCYTOCLASTIC VASCULITIS [None]
  - REFUSAL OF TREATMENT BY RELATIVE [None]
  - RENAL FAILURE ACUTE [None]
  - STEVENS-JOHNSON SYNDROME [None]
